FAERS Safety Report 7635930 (Version 4)
Quarter: 2013Q1

REPORT INFORMATION
  Report Type: Report from Study
  Country: FR (occurrence: FR)
  Receive Date: 20101021
  Receipt Date: 20130305
  Transmission Date: 20140127
  Serious: Yes (Death, Hospitalization, Other)
  Sender: FDA-Public Use
  Company Number: FR-CELGENEUS-056-21880-10101426

PATIENT
  Age: 83 Year
  Sex: Female
  Weight: 54 kg

DRUGS (7)
  1. REVLIMID [Suspect]
     Indication: 5Q MINUS SYNDROME
     Dosage: 5 MILLIGRAM
     Route: 048
     Dates: start: 20100806, end: 20101003
  2. REVLIMID [Suspect]
     Dosage: 5 MILLIGRAM
     Route: 048
     Dates: end: 20101008
  3. ASPIRINE [Concomitant]
     Indication: THROMBOSIS PROPHYLAXIS
     Dosage: 75 MILLIGRAM
     Route: 065
  4. TRIATEC [Concomitant]
     Indication: HYPERTENSION
     Dosage: 2.5 MILLIGRAM
     Route: 048
  5. PREVISCAN [Concomitant]
     Indication: THROMBOSIS PROPHYLAXIS
     Dosage: 5 MILLIGRAM
     Route: 048
     Dates: end: 20101008
  6. LEVOTHYROX [Concomitant]
     Indication: HYPOTHYROIDISM
     Dosage: 75 MILLIGRAM
     Route: 048
     Dates: end: 20101008
  7. OFLOCET [Concomitant]
     Indication: ANTIBIOTIC PROPHYLAXIS
     Dosage: 200 MILLIGRAM
     Route: 048

REACTIONS (5)
  - Febrile neutropenia [Fatal]
  - Staphylococcal sepsis [Fatal]
  - General physical health deterioration [Fatal]
  - Pulmonary embolism [Recovered/Resolved]
  - Cardiac failure [Recovered/Resolved]
